FAERS Safety Report 18039759 (Version 4)
Quarter: 2023Q2

REPORT INFORMATION
  Report Type: Spontaneous
  Country: US (occurrence: None)
  Receive Date: 20200717
  Receipt Date: 20230403
  Transmission Date: 20230721
  Serious: Yes (Other)
  Sender: FDA-Public Use
  Company Number: 2020SE89204

PATIENT
  Age: 17774 Day
  Sex: Female
  Weight: 90.7 kg

DRUGS (106)
  1. NEXIUM [Suspect]
     Active Substance: ESOMEPRAZOLE MAGNESIUM
     Indication: Gastrooesophageal reflux disease
     Dosage: 40.0MG UNKNOWN
     Route: 048
     Dates: start: 2000, end: 2018
  2. NEXIUM [Suspect]
     Active Substance: ESOMEPRAZOLE MAGNESIUM
     Indication: Gastrooesophageal reflux disease
     Dosage: 40.0MG UNKNOWN
     Route: 048
     Dates: start: 20120114
  3. NEXIUM [Suspect]
     Active Substance: ESOMEPRAZOLE MAGNESIUM
     Indication: Gastrooesophageal reflux disease
     Dosage: 40.0MG UNKNOWN
     Route: 048
     Dates: start: 20090129
  4. NEXIUM [Suspect]
     Active Substance: ESOMEPRAZOLE MAGNESIUM
     Indication: Gastrooesophageal reflux disease
     Dosage: UNKNOWN
     Route: 048
     Dates: start: 200901, end: 201312
  5. NEXIUM [Suspect]
     Active Substance: ESOMEPRAZOLE MAGNESIUM
     Indication: Gastrooesophageal reflux disease
     Dosage: UNKNOWN
     Route: 048
     Dates: start: 2009, end: 2013
  6. NEXIUM [Suspect]
     Active Substance: ESOMEPRAZOLE MAGNESIUM
     Indication: Gastrooesophageal reflux disease
     Dosage: UNKNOWN
     Route: 048
     Dates: start: 201512
  7. PRILOSEC [Suspect]
     Active Substance: OMEPRAZOLE MAGNESIUM
     Indication: Gastrooesophageal reflux disease
     Route: 048
     Dates: start: 2000, end: 2018
  8. PRILOSEC [Suspect]
     Active Substance: OMEPRAZOLE MAGNESIUM
     Indication: Gastrooesophageal reflux disease
     Dosage: GENERIC40.0MG UNKNOWN
     Route: 048
     Dates: start: 2000, end: 2018
  9. PRILOSEC [Suspect]
     Active Substance: OMEPRAZOLE MAGNESIUM
     Indication: Gastrooesophageal reflux disease
     Dosage: GENERIC40.0MG UNKNOWN
     Route: 048
     Dates: start: 20140516
  10. PRILOSEC [Suspect]
     Active Substance: OMEPRAZOLE MAGNESIUM
     Indication: Gastrooesophageal reflux disease
     Dosage: UNKNOWN
     Route: 048
     Dates: start: 200605, end: 200609
  11. PRILOSEC [Suspect]
     Active Substance: OMEPRAZOLE MAGNESIUM
     Indication: Gastrooesophageal reflux disease
     Dosage: UNKNOWN
     Route: 048
     Dates: start: 201302, end: 201806
  12. PRILOSEC [Suspect]
     Active Substance: OMEPRAZOLE MAGNESIUM
     Indication: Gastrooesophageal reflux disease
     Dosage: GENERIC40.0MG UNKNOWN
     Route: 048
     Dates: start: 201405, end: 201806
  13. PRILOSEC [Suspect]
     Active Substance: OMEPRAZOLE MAGNESIUM
     Indication: Gastrooesophageal reflux disease
     Dosage: GENERIC40.0MG UNKNOWN
     Route: 048
     Dates: start: 200607
  14. DEXILANT [Suspect]
     Active Substance: DEXLANSOPRAZOLE
     Indication: Gastrooesophageal reflux disease
     Dosage: 60.0MG UNKNOWN
     Dates: start: 2000, end: 2018
  15. DEXILANT [Suspect]
     Active Substance: DEXLANSOPRAZOLE
     Indication: Gastrooesophageal reflux disease
     Dosage: 60.0MG UNKNOWN
     Dates: start: 20130915
  16. DEXILANT [Suspect]
     Active Substance: DEXLANSOPRAZOLE
     Indication: Gastrooesophageal reflux disease
     Dosage: 60.0MG UNKNOWN
     Dates: start: 201312, end: 201402
  17. DEXILANT [Suspect]
     Active Substance: DEXLANSOPRAZOLE
     Indication: Gastrooesophageal reflux disease
     Dosage: 60.0MG UNKNOWN
     Dates: start: 2013, end: 2014
  18. PREVACID [Suspect]
     Active Substance: LANSOPRAZOLE
     Indication: Gastrooesophageal reflux disease
     Dosage: 30.0MG UNKNOWN
     Dates: start: 2000, end: 2018
  19. PREVACID [Suspect]
     Active Substance: LANSOPRAZOLE
     Indication: Gastrooesophageal reflux disease
     Dosage: 30.0MG UNKNOWN
     Dates: start: 20070117
  20. PREVACID [Suspect]
     Active Substance: LANSOPRAZOLE
     Indication: Gastrooesophageal reflux disease
     Dosage: UNKNOWN
     Dates: start: 20080430
  21. PREVACID [Suspect]
     Active Substance: LANSOPRAZOLE
     Indication: Gastrooesophageal reflux disease
     Dosage: UNKNOWN
     Dates: start: 200607, end: 2009
  22. PROTONIX [Suspect]
     Active Substance: PANTOPRAZOLE SODIUM
     Indication: Gastrooesophageal reflux disease
     Dosage: GENERIC40.0MG UNKNOWN
     Dates: start: 2000, end: 2018
  23. PROTONIX [Suspect]
     Active Substance: PANTOPRAZOLE SODIUM
     Indication: Gastrooesophageal reflux disease
     Dosage: GENERIC40.0MG UNKNOWN
     Dates: start: 20140228
  24. PROTONIX [Suspect]
     Active Substance: PANTOPRAZOLE SODIUM
     Indication: Gastrooesophageal reflux disease
     Dosage: 40.0MG UNKNOWN
     Route: 048
     Dates: start: 20140224
  25. PROTONIX [Suspect]
     Active Substance: PANTOPRAZOLE SODIUM
     Indication: Gastrooesophageal reflux disease
     Dosage: GENERIC40.0MG UNKNOWN
     Dates: start: 201402
  26. CRESTOR [Concomitant]
     Active Substance: ROSUVASTATIN CALCIUM
     Indication: Blood cholesterol increased
     Dates: start: 2009, end: 2016
  27. IBUPROFEN [Concomitant]
     Active Substance: IBUPROFEN
     Indication: Pain
     Route: 065
     Dates: start: 2005, end: 2017
  28. PEPCID [Concomitant]
     Active Substance: FAMOTIDINE
     Route: 065
     Dates: start: 2019
  29. PEPCID [Concomitant]
     Active Substance: FAMOTIDINE
     Dosage: GENERIC
     Route: 065
     Dates: start: 2019
  30. RANITIDINE [Concomitant]
     Active Substance: RANITIDINE
     Route: 065
     Dates: start: 2018
  31. TETRACYCLINE HYDROCHLORIDE [Concomitant]
     Active Substance: TETRACYCLINE HYDROCHLORIDE
     Route: 065
     Dates: start: 20070927
  32. TRIMETHOPRIM [Concomitant]
     Active Substance: TRIMETHOPRIM
     Route: 065
     Dates: start: 20070927
  33. VANCOMYCIN HYDROCHLORIDE [Concomitant]
     Active Substance: VANCOMYCIN HYDROCHLORIDE
     Route: 065
     Dates: start: 20070927
  34. ZITHROMAX [Concomitant]
     Active Substance: AZITHROMYCIN DIHYDRATE
     Route: 065
     Dates: start: 20070927
  35. ZYVOX [Concomitant]
     Active Substance: LINEZOLID
     Route: 065
     Dates: start: 20070927
  36. CARBAMAZEPINE [Concomitant]
     Active Substance: CARBAMAZEPINE
     Route: 065
     Dates: start: 20070927
  37. DEPAKOTE [Concomitant]
     Active Substance: DIVALPROEX SODIUM
     Route: 065
     Dates: start: 20070927
  38. DILANTIN [Concomitant]
     Active Substance: PHENYTOIN
     Route: 065
     Dates: start: 20070927
  39. GABAPENTIN [Concomitant]
     Active Substance: GABAPENTIN
     Route: 065
     Dates: start: 20070927
  40. GABITRIL [Concomitant]
     Active Substance: TIAGABINE HYDROCHLORIDE
     Route: 065
     Dates: start: 20070927
  41. KEPPRA [Concomitant]
     Active Substance: LEVETIRACETAM
     Route: 065
     Dates: start: 20070927
  42. LAMICTAL [Concomitant]
     Active Substance: LAMOTRIGINE
     Route: 065
     Dates: start: 20070927
  43. TOPAMAX [Concomitant]
     Active Substance: TOPIRAMATE
     Route: 065
     Dates: start: 20070927
  44. TRILEPTAL [Concomitant]
     Active Substance: OXCARBAZEPINE
     Route: 065
     Dates: start: 20070927
  45. ZONEGRAN [Concomitant]
     Active Substance: ZONISAMIDE
     Route: 065
     Dates: start: 20070927
  46. WELLBUTRIN XL [Concomitant]
     Active Substance: BUPROPION HYDROCHLORIDE
     Route: 065
     Dates: start: 20080115
  47. LEXAPRO [Concomitant]
     Active Substance: ESCITALOPRAM OXALATE
     Route: 065
     Dates: start: 20080115
  48. KLONOPIN [Concomitant]
     Active Substance: CLONAZEPAM
     Route: 065
     Dates: start: 20080115
  49. ELMIRON [Concomitant]
     Active Substance: PENTOSAN POLYSULFATE SODIUM
     Route: 065
     Dates: start: 20120731
  50. ELMIRON [Concomitant]
     Active Substance: PENTOSAN POLYSULFATE SODIUM
     Route: 065
     Dates: start: 2005, end: 2019
  51. CLOBETASOL [Concomitant]
     Active Substance: CLOBETASOL
     Route: 065
     Dates: start: 20130403
  52. NAPROXEN [Concomitant]
     Active Substance: NAPROXEN
     Route: 065
     Dates: start: 20131005
  53. BENZONATATE [Concomitant]
     Active Substance: BENZONATATE
     Route: 065
     Dates: start: 20140425
  54. FLUTICASONE [Concomitant]
     Active Substance: FLUTICASONE
     Route: 065
     Dates: start: 20140425
  55. CEFDINIR [Concomitant]
     Active Substance: CEFDINIR
     Route: 065
     Dates: start: 20140425
  56. VENTOLIN HFA [Concomitant]
     Active Substance: ALBUTEROL SULFATE
     Route: 065
     Dates: start: 20160429
  57. PRAMIPEXOLE [Concomitant]
     Active Substance: PRAMIPEXOLE
     Route: 065
     Dates: start: 20160720
  58. FLUCONAZOLE [Concomitant]
     Active Substance: FLUCONAZOLE
     Route: 065
     Dates: start: 20170112
  59. APRISO [Concomitant]
     Active Substance: MESALAMINE
     Route: 065
     Dates: start: 20180502
  60. EFFEXOR [Concomitant]
     Active Substance: VENLAFAXINE HYDROCHLORIDE
     Route: 065
     Dates: start: 20041213
  61. NITROFURANTOIN [Concomitant]
     Active Substance: NITROFURANTOIN
     Route: 065
     Dates: start: 20050429
  62. PHENAZOPYRIDINE [Concomitant]
     Active Substance: PHENAZOPYRIDINE
     Route: 065
     Dates: start: 20050614
  63. AMOXICILLIN [Concomitant]
     Active Substance: AMOXICILLIN
     Route: 065
     Dates: start: 20050917
  64. TAMIFLU [Concomitant]
     Active Substance: OSELTAMIVIR PHOSPHATE
     Route: 065
  65. VIGAMOX [Concomitant]
     Active Substance: MOXIFLOXACIN HYDROCHLORIDE
     Route: 065
     Dates: start: 20080506
  66. MEDROL [Concomitant]
     Active Substance: METHYLPREDNISOLONE
  67. MORPHINE [Concomitant]
     Active Substance: MORPHINE
  68. PREDNISONE [Concomitant]
     Active Substance: PREDNISONE
  69. PROMETHAZINE [Concomitant]
     Active Substance: PROMETHAZINE HYDROCHLORIDE
  70. ATARAX [Concomitant]
     Active Substance: HYDROXYZINE HYDROCHLORIDE
  71. PRINIVIL [Concomitant]
     Active Substance: LISINOPRIL
  72. DULOXETINE [Concomitant]
     Active Substance: DULOXETINE
  73. TIZANIDINE [Concomitant]
     Active Substance: TIZANIDINE
  74. MONTELUKAST [Concomitant]
     Active Substance: MONTELUKAST SODIUM
  75. OXYBUTYNIN [Concomitant]
     Active Substance: OXYBUTYNIN
  76. DICYCLOMINE [Concomitant]
     Active Substance: DICYCLOMINE HYDROCHLORIDE
  77. DICLOFENAC [Concomitant]
     Active Substance: DICLOFENAC
  78. HYDROXYZINE PAMOATE [Concomitant]
     Active Substance: HYDROXYZINE PAMOATE
  79. CYCLOBENZAPRINE [Concomitant]
     Active Substance: CYCLOBENZAPRINE
  80. TOLTERODINE [Concomitant]
     Active Substance: TOLTERODINE
  81. CHLORHEXIDINE [Concomitant]
     Active Substance: CHLORHEXIDINE
  82. LEVOFLOXACIN [Concomitant]
     Active Substance: LEVOFLOXACIN
  83. AMOXICILLIN\CLAVULANATE POTASSIUM [Concomitant]
     Active Substance: AMOXICILLIN\CLAVULANATE POTASSIUM
  84. PAXIL [Concomitant]
     Active Substance: PAROXETINE HYDROCHLORIDE
  85. ZOLOFT [Concomitant]
     Active Substance: SERTRALINE HYDROCHLORIDE
  86. PROZAC [Concomitant]
     Active Substance: FLUOXETINE HYDROCHLORIDE
  87. BACTRIM [Concomitant]
     Active Substance: SULFAMETHOXAZOLE\TRIMETHOPRIM
  88. IMIPRAMINE [Concomitant]
     Active Substance: IMIPRAMINE
  89. LEXOPRO [Concomitant]
  90. MUCINEX [Concomitant]
     Active Substance: GUAIFENESIN
  91. FINASTIRIDE [Concomitant]
  92. TAMSULOSIN [Concomitant]
     Active Substance: TAMSULOSIN
  93. FERROUS SULFATE [Concomitant]
     Active Substance: FERROUS SULFATE
  94. DOCUSATE SODIUM [Concomitant]
     Active Substance: DOCUSATE SODIUM
  95. VERAPAMIL [Concomitant]
     Active Substance: VERAPAMIL HYDROCHLORIDE
  96. SYMBICORT [Concomitant]
     Active Substance: BUDESONIDE\FORMOTEROL FUMARATE DIHYDRATE
  97. UNSPECIFIED INGREDIENT [Concomitant]
     Active Substance: UNSPECIFIED INGREDIENT
  98. ALBUTEROL SULFATE [Concomitant]
     Active Substance: ALBUTEROL SULFATE
  99. CEPHALEXIN [Concomitant]
     Active Substance: CEPHALEXIN
     Dates: start: 2018
  100. CIPROFLOXACIN [Concomitant]
     Active Substance: CIPROFLOXACIN
     Dates: start: 2005
  101. LORATADINE [Concomitant]
     Active Substance: LORATADINE
     Dates: start: 2005
  102. AMMONIUM CHLORIDE\DEXTROMETHORPHAN\SODIUM CITRATE [Concomitant]
     Active Substance: AMMONIUM CHLORIDE\DEXTROMETHORPHAN\SODIUM CITRATE
     Dates: start: 20070320
  103. METOCLOPRAMIDE [Concomitant]
     Active Substance: METOCLOPRAMIDE
     Dates: start: 2017
  104. MELOXICAM [Concomitant]
     Active Substance: MELOXICAM
     Dates: start: 200905, end: 200907
  105. ETODOLAC [Concomitant]
     Active Substance: ETODOLAC
     Dates: start: 201006
  106. METRONIDAZOLE [Concomitant]
     Active Substance: METRONIDAZOLE
     Dates: start: 2006

REACTIONS (3)
  - Chronic kidney disease [Not Recovered/Not Resolved]
  - Renal failure [Not Recovered/Not Resolved]
  - Tubulointerstitial nephritis [Unknown]

NARRATIVE: CASE EVENT DATE: 20160419
